FAERS Safety Report 6652830-3 (Version None)
Quarter: 2010Q1

REPORT INFORMATION
  Report Type: 
  Country: None (occurrence: None)
  Receive Date: 20100325
  Receipt Date: 20100325
  Transmission Date: 20100710
  Serious: Yes (Life-Threatening, Hospitalization)
  Sender: FDA-Public Use
  Company Number: None

PATIENT
  Age: 65 Year
  Sex: Female
  Weight: 70.7611 kg

DRUGS (2)
  1. PLAVIX [Suspect]
     Indication: CEREBROVASCULAR ACCIDENT
     Dosage: 1 TABLET 1 DAILY
     Dates: start: 20100319, end: 20100324
  2. HYDROCHLOROTHIAZIDE [Suspect]
     Indication: CEREBROVASCULAR ACCIDENT
     Dosage: 1 TABLET 1 DAILY
     Dates: start: 20100319, end: 20100324

REACTIONS (6)
  - CEREBROVASCULAR ACCIDENT [None]
  - CONSTIPATION [None]
  - DIZZINESS [None]
  - MALAISE [None]
  - PALPITATIONS [None]
  - PARAESTHESIA [None]
